FAERS Safety Report 15908368 (Version 1)
Quarter: 2019Q1

REPORT INFORMATION
  Report Type: Spontaneous
  Country: US (occurrence: US)
  Receive Date: 20190204
  Receipt Date: 20190204
  Transmission Date: 20190417
  Serious: No
  Sender: FDA-Public Use
  Company Number: US-ABBVIE-18K-163-2247664-00

PATIENT
  Sex: Female

DRUGS (2)
  1. HUMIRA [Suspect]
     Active Substance: ADALIMUMAB
     Indication: HIDRADENITIS
     Route: 058
     Dates: start: 2017, end: 201712
  2. HUMIRA [Suspect]
     Active Substance: ADALIMUMAB
     Route: 058
     Dates: start: 20180119

REACTIONS (6)
  - Drug withdrawal syndrome [Unknown]
  - Acne [Unknown]
  - Wound [Not Recovered/Not Resolved]
  - Dehydration [Unknown]
  - Weight increased [Unknown]
  - Weight decreased [Unknown]
